FAERS Safety Report 7760323-5 (Version None)
Quarter: 2011Q3

REPORT INFORMATION
  Report Type: 
  Country: None (occurrence: None)
  Receive Date: 20110919
  Receipt Date: 20110915
  Transmission Date: 20111222
  Serious: Yes (Life-Threatening, Hospitalization, Other)
  Sender: FDA-Public Use
  Company Number: CN-ASTRAZENECA-2011SE41023

PATIENT
  Age: 60 Year
  Sex: Male

DRUGS (6)
  1. ASPIRIN [Concomitant]
  2. AMLODIPINE [Concomitant]
  3. TRIMETAZIDINE [Concomitant]
  4. CRESTOR [Suspect]
     Route: 048
     Dates: start: 20110603, end: 20110609
  5. CLOPIDOGREL [Concomitant]
  6. TCMS [Concomitant]
     Indication: CARDIOVASCULAR DISORDER

REACTIONS (7)
  - RESPIRATORY FAILURE [None]
  - CEREBRAL INFARCTION [None]
  - RHABDOMYOLYSIS [None]
  - CHEST PAIN [None]
  - MULTI-ORGAN FAILURE [None]
  - DYSARTHRIA [None]
  - HEMIPARESIS [None]
